FAERS Safety Report 5036838-X (Version None)
Quarter: 2006Q2

REPORT INFORMATION
  Report Type: 
  Country: None (occurrence: None)
  Receive Date: 20060601
  Receipt Date: 20060202
  Transmission Date: 20061013
  Serious: Yes (Other)
  Sender: FDA-Public Use
  Company Number: US200601001128

PATIENT
  Age: 64 Year
  Sex: Female

DRUGS (5)
  1. CYMBALTA [Suspect]
     Indication: DEPRESSION
     Dosage: 30 MG, DAILY (1/D)
     Dates: start: 20060105
  2. THEOPHYLLINE [Concomitant]
  3. QVAR (BECLOMETASONE DIPROPIONATE) [Concomitant]
  4. COMBIVENT [Concomitant]
  5. XANAX                            /USA/ (ALPRAZOLAM) [Concomitant]

REACTIONS (9)
  - ANGLE CLOSURE GLAUCOMA [None]
  - CANDIDIASIS [None]
  - DRY MOUTH [None]
  - EYE PAIN [None]
  - HEART RATE INCREASED [None]
  - INSOMNIA [None]
  - NAUSEA [None]
  - TENSION HEADACHE [None]
  - VISION BLURRED [None]
